FAERS Safety Report 8168944-5 (Version None)
Quarter: 2012Q1

REPORT INFORMATION
  Report Type: 
  Country: None (occurrence: None)
  Receive Date: 20120227
  Receipt Date: 20110215
  Transmission Date: 20120608
  Serious: Yes (Other)
  Sender: FDA-Public Use
  Company Number: JP-BAUSCH-2010BL002010

PATIENT
  Age: 44 Year
  Sex: Female

DRUGS (18)
  1. FLUOCINOLONE ACETONIDE [Suspect]
     Route: 047
     Dates: start: 20030221
  2. METHYCOBAL [Concomitant]
     Route: 048
  3. FLUOCINOLONE ACETONIDE [Concomitant]
     Indication: UVEITIS
     Route: 047
     Dates: start: 20060818
  4. PREDNISOLONE [Concomitant]
     Route: 048
  5. CINAL [Concomitant]
     Route: 048
  6. TRAVATAN [Concomitant]
     Route: 047
  7. COLCHICINE [Concomitant]
     Route: 048
  8. BUFFERIN [Concomitant]
     Route: 048
  9. LIPITOR [Concomitant]
     Route: 048
  10. CARNACULIN [Concomitant]
     Route: 048
  11. ALFACALCIDOL [Concomitant]
     Route: 048
  12. ASPIRIN [Concomitant]
     Route: 048
  13. ALENDRONATE SODIUM [Concomitant]
     Route: 048
     Dates: start: 20070817
  14. FLUOCINOLONE ACETONIDE [Suspect]
     Route: 047
     Dates: start: 20061201
  15. TARIVID /SCH/ [Concomitant]
     Route: 047
     Dates: start: 20090419
  16. LANSOPRAZOLE [Concomitant]
     Route: 048
     Dates: start: 20070730
  17. HYALEIN [Concomitant]
     Route: 047
     Dates: start: 20090205
  18. HYALEIN [Concomitant]
     Route: 047
     Dates: start: 20090205

REACTIONS (7)
  - METASTATIC LYMPHOMA [None]
  - BEHCET'S SYNDROME [None]
  - METASTASES TO CENTRAL NERVOUS SYSTEM [None]
  - MENINGITIS [None]
  - GLAUCOMA [None]
  - EYELID PTOSIS [None]
  - METASTASES TO EYE [None]
